FAERS Safety Report 5317878-X (Version None)
Quarter: 2007Q2

REPORT INFORMATION
  Report Type: 
  Country: None (occurrence: None)
  Receive Date: 20070430
  Receipt Date: 20070418
  Transmission Date: 20071010
  Serious: Yes (Other)
  Sender: FDA-Public Use
  Company Number: 2007SP007431

PATIENT
  Age: 15 Year
  Sex: Female

DRUGS (3)
  1. CLARITIN [Suspect]
     Indication: DERMATITIS ATOPIC
     Dosage: 10 MG; PO
     Route: 048
     Dates: start: 20060904, end: 20070418
  2. AZELASTINE HCL [Concomitant]
  3. BANAN [Concomitant]

REACTIONS (3)
  - FACE OEDEMA [None]
  - OEDEMA PERIPHERAL [None]
  - WEIGHT INCREASED [None]
